FAERS Safety Report 24708946 (Version 1)
Quarter: 2024Q4

REPORT INFORMATION
  Report Type: Spontaneous
  Country: ES (occurrence: ES)
  Receive Date: 20241208
  Receipt Date: 20241208
  Transmission Date: 20250114
  Serious: Yes (Other)
  Sender: CSL BEHRING
  Company Number: ES-BEH-2024186719

PATIENT
  Age: 51 Year
  Sex: Male

DRUGS (1)
  1. HAEMATE P [Suspect]
     Active Substance: ANTIHEMOPHILIC FACTOR HUMAN
     Indication: Von Willebrand^s disease
     Dosage: UNK, ON DEMAND
     Route: 065

REACTIONS (2)
  - Craniocerebral injury [Recovered/Resolved]
  - Central nervous system haemorrhage [Unknown]
